FAERS Safety Report 5207866-6 (Version None)
Quarter: 2007Q1

REPORT INFORMATION
  Report Type: 
  Country: None (occurrence: None)
  Receive Date: 20070112
  Receipt Date: 20070105
  Transmission Date: 20070707
  Serious: Yes (Hospitalization)
  Sender: FDA-Public Use
  Company Number: FR-PFIZER INC-2007002279

PATIENT
  Age: 85 Year
  Sex: Female
  Weight: 150 kg

DRUGS (5)
  1. SOLU-MEDROL [Suspect]
     Dosage: DAILY DOSE:120MG-TEXT:120MG/2ML
     Route: 042
  2. PACLITAXEL [Suspect]
     Indication: BREAST CANCER
     Dosage: DAILY DOSE:250MG
     Route: 042
  3. RANITIDINE [Suspect]
     Dosage: DAILY DOSE:50MG
     Route: 042
  4. DEXCHLORPHENIRAMINE [Suspect]
     Dosage: DAILY DOSE:5MG
     Route: 042
  5. TRASTUZUMAB [Suspect]
     Indication: BREAST CANCER
     Dosage: DAILY DOSE:800MG
     Route: 042

REACTIONS (5)
  - CARDIAC FAILURE [None]
  - HYPERTENSION [None]
  - PULMONARY OEDEMA [None]
  - SUPRAVENTRICULAR EXTRASYSTOLES [None]
  - VENTRICULAR EXTRASYSTOLES [None]
